FAERS Safety Report 9054113 (Version 1)
Quarter: 2013Q1

REPORT INFORMATION
  Report Type: Spontaneous
  Country: GB (occurrence: GB)
  Receive Date: 20130208
  Receipt Date: 20130208
  Transmission Date: 20140127
  Serious: Yes (Death, Other)
  Sender: FDA-Public Use
  Company Number: GB-PFIZER INC-2013051055

PATIENT
  Sex: 0

DRUGS (1)
  1. PREGABALIN [Suspect]
     Dosage: UNK

REACTIONS (2)
  - Death [Fatal]
  - Drug abuse [Unknown]
